FAERS Safety Report 6951285-9 (Version None)
Quarter: 2010Q3

REPORT INFORMATION
  Report Type: 
  Country: None (occurrence: None)
  Receive Date: 20100828
  Receipt Date: 20100318
  Transmission Date: 20110219
  Serious: No
  Sender: FDA-Public Use
  Company Number: US-ABBOTT-10P-163-0633924-00

PATIENT
  Sex: Male
  Weight: 99.88 kg

DRUGS (9)
  1. NIASPAN [Suspect]
     Indication: HIGH DENSITY LIPOPROTEIN DECREASED
     Dates: start: 20100310
  2. FLOMAX [Concomitant]
     Indication: PROSTATIC DISORDER
  3. LIPITOR [Concomitant]
     Indication: BLOOD CHOLESTEROL INCREASED
  4. ELAVIL [Concomitant]
     Indication: TINNITUS
  5. LISINOPRIL [Concomitant]
     Indication: HYPERTENSION
  6. COREG [Concomitant]
     Indication: HYPERTENSION
  7. CHLORTHALIDONE [Concomitant]
     Indication: DIURETIC THERAPY
  8. BIOFLAVANOID [Concomitant]
     Indication: VITAMIN SUPPLEMENTATION
  9. FISH OIL [Concomitant]
     Indication: VITAMIN SUPPLEMENTATION

REACTIONS (4)
  - CONSTIPATION [None]
  - DIZZINESS [None]
  - HEADACHE [None]
  - TINNITUS [None]
